FAERS Safety Report 16860065 (Version 1)
Quarter: 2019Q3

REPORT INFORMATION
  Report Type: Spontaneous
  Country: IT (occurrence: IT)
  Receive Date: 20190927
  Receipt Date: 20190927
  Transmission Date: 20191005
  Serious: Yes (Other)
  Sender: FDA-Public Use
  Company Number: IT-BAUSCH-BL-2019-054724

PATIENT
  Age: 63 Year
  Sex: Male

DRUGS (4)
  1. ZARZIO [Concomitant]
     Active Substance: FILGRASTIM
     Indication: PRODUCT USED FOR UNKNOWN INDICATION
  2. CALCIUM LEVOFOLINATE [Concomitant]
     Active Substance: LEVOLEUCOVORIN CALCIUM
     Indication: PRODUCT USED FOR UNKNOWN INDICATION
  3. FLUOROURACIL AHCL [Suspect]
     Active Substance: FLUOROURACIL
     Indication: RECTAL NEOPLASM
     Route: 065
  4. OXALIPLATIN. [Suspect]
     Active Substance: OXALIPLATIN
     Indication: RECTAL NEOPLASM
     Route: 065

REACTIONS (8)
  - Neutropenia [Unknown]
  - Hypersensitivity [Unknown]
  - Asthenia [Unknown]
  - Insomnia [Unknown]
  - Dry skin [Unknown]
  - Dysgeusia [Unknown]
  - Nausea [Unknown]
  - Phlebitis [Unknown]
